FAERS Safety Report 20433091 (Version 1)
Quarter: 2022Q1

REPORT INFORMATION
  Report Type: Spontaneous
  Country: US (occurrence: US)
  Receive Date: 20220205
  Receipt Date: 20220205
  Transmission Date: 20220423
  Serious: No
  Sender: FDA-Public Use
  Company Number: US-SA-SAC20220130000303

PATIENT
  Sex: Female

DRUGS (2)
  1. DUPIXENT [Suspect]
     Active Substance: DUPILUMAB
     Indication: Nasal polyps
     Dosage: 1 PEN EVERY 14 DAYS
     Route: 058
  2. DUPIXENT [Suspect]
     Active Substance: DUPILUMAB
     Dosage: 300MG
     Route: 058

REACTIONS (3)
  - Ocular hyperaemia [Not Recovered/Not Resolved]
  - Lacrimation increased [Unknown]
  - Product use in unapproved indication [Unknown]
